FAERS Safety Report 7256346-5 (Version None)
Quarter: 2011Q1

REPORT INFORMATION
  Report Type: 
  Country: None (occurrence: None)
  Receive Date: 20110129
  Receipt Date: 20100617
  Transmission Date: 20110831
  Serious: Yes (Hospitalization)
  Sender: FDA-Public Use
  Company Number: US-ABBOTT-10P-163-0643814-00

PATIENT
  Sex: Male
  Weight: 55.388 kg

DRUGS (6)
  1. XANAX [Concomitant]
     Indication: PRODUCT USED FOR UNKNOWN INDICATION
  2. LIPITOR [Concomitant]
     Indication: PRODUCT USED FOR UNKNOWN INDICATION
     Dates: start: 20080101
  3. SYNTHROID [Concomitant]
     Indication: PRODUCT USED FOR UNKNOWN INDICATION
  4. HUMIRA [Suspect]
     Indication: RHEUMATOID ARTHRITIS
     Dates: start: 20070101
  5. ASA [Concomitant]
     Indication: CORONARY ARTERIAL STENT INSERTION
     Dates: start: 20080101
  6. CLONAZEPAM [Concomitant]
     Indication: PRODUCT USED FOR UNKNOWN INDICATION

REACTIONS (6)
  - CELLULITIS [None]
  - INJECTION SITE ERYTHEMA [None]
  - COUGH [None]
  - CONSTIPATION [None]
  - PRODUCTIVE COUGH [None]
  - UPPER-AIRWAY COUGH SYNDROME [None]
